FAERS Safety Report 7197285-8 (Version None)
Quarter: 2010Q4

REPORT INFORMATION
  Report Type: 
  Country: None (occurrence: None)
  Receive Date: 20101226
  Receipt Date: 20101215
  Transmission Date: 20110411
  Serious: Yes (Other)
  Sender: FDA-Public Use
  Company Number: IT-BRISTOL-MYERS SQUIBB COMPANY-15454341

PATIENT
  Age: 54 Year
  Sex: Male

DRUGS (5)
  1. ERBITUX [Suspect]
     Indication: HEAD AND NECK CANCER
     Dosage: LOADING DOSE,ALSO TAKEN 250 MG/M2
     Route: 042
  2. INTERFERON ALFA [Concomitant]
     Indication: CHRONIC MYELOID LEUKAEMIA
     Dosage: 1 DF= 9MUI
     Dates: start: 19910101, end: 19960201
  3. HYDROXYUREA [Concomitant]
     Indication: CHRONIC MYELOID LEUKAEMIA
     Dates: start: 19960201
  4. DASATINIB [Concomitant]
     Indication: CHRONIC MYELOID LEUKAEMIA
     Dosage: ALSO TAKEN 100MG,50MG AS A PRECAUTIONARY MEASURE,100MG
     Dates: start: 20061101
  5. IMATINIB MESYLATE [Concomitant]
     Indication: CHRONIC MYELOID LEUKAEMIA
     Dosage: ALSO TAKEN 400 MG
     Dates: start: 20010101

REACTIONS (3)
  - LEUKOPENIA [None]
  - MUCOSAL INFLAMMATION [None]
  - THROMBOCYTOPENIA [None]
